FAERS Safety Report 12381718 (Version 1)
Quarter: 2016Q2

REPORT INFORMATION
  Report Type: Report from Study
  Country: CH (occurrence: CH)
  Receive Date: 20160518
  Receipt Date: 20160518
  Transmission Date: 20160815
  Serious: Yes (Other)
  Sender: FDA-Public Use
  Company Number: CH-JNJFOC-20160516242

PATIENT
  Age: 89 Year
  Sex: Female

DRUGS (2)
  1. RIVAROXABAN [Suspect]
     Active Substance: RIVAROXABAN
     Indication: CEREBROVASCULAR ACCIDENT PROPHYLAXIS
     Route: 048
  2. RIVAROXABAN [Suspect]
     Active Substance: RIVAROXABAN
     Indication: ATRIAL FIBRILLATION
     Route: 048

REACTIONS (5)
  - Epistaxis [Unknown]
  - Subarachnoid haemorrhage [Unknown]
  - Fall [Unknown]
  - Sinus disorder [Unknown]
  - Cerebral haemorrhage [Unknown]
